FAERS Safety Report 10498035 (Version 1)
Quarter: 2014Q4

REPORT INFORMATION
  Report Type: Spontaneous
  Country: US (occurrence: US)
  Receive Date: 20141006
  Receipt Date: 20141006
  Transmission Date: 20150528
  Serious: No
  Sender: FDA-Public Use
  Company Number: US-ELI_LILLY_AND_COMPANY-US201410000767

PATIENT
  Age: 48 Year

DRUGS (7)
  1. AMOXICILLIN. [Concomitant]
     Active Substance: AMOXICILLIN
  2. ATORVASTATIN [Concomitant]
     Active Substance: ATORVASTATIN
  3. HUMALOG [Suspect]
     Active Substance: INSULIN LISPRO
     Indication: TYPE 2 DIABETES MELLITUS
     Dosage: 10 U, TID
     Route: 065
     Dates: start: 20140924
  4. LANSOPRAZOLE. [Concomitant]
     Active Substance: LANSOPRAZOLE
  5. CLARITHROMYCIN. [Concomitant]
     Active Substance: CLARITHROMYCIN
  6. LOSARTAN [Concomitant]
     Active Substance: LOSARTAN
  7. GABAPENTIN. [Concomitant]
     Active Substance: GABAPENTIN

REACTIONS (2)
  - Drug dose omission [Unknown]
  - Blood glucose increased [Unknown]

NARRATIVE: CASE EVENT DATE: 20141001
